FAERS Safety Report 15877923 (Version 1)
Quarter: 2019Q1

REPORT INFORMATION
  Report Type: Report from Study
  Country: CO (occurrence: CO)
  Receive Date: 20190128
  Receipt Date: 20190128
  Transmission Date: 20190417
  Serious: Yes (Other)
  Sender: FDA-Public Use
  Company Number: CO-AMGEN-COLSL2019011394

PATIENT
  Age: 62 Year
  Sex: Female

DRUGS (3)
  1. NPLATE [Suspect]
     Active Substance: ROMIPLOSTIM
     Indication: IMMUNE THROMBOCYTOPENIC PURPURA
     Dosage: 350 MCG, QWK
     Route: 058
     Dates: start: 20160420, end: 2018
  2. NPLATE [Suspect]
     Active Substance: ROMIPLOSTIM
     Dosage: 350 MCG, QWK
     Route: 058
     Dates: start: 20190109
  3. NPLATE [Suspect]
     Active Substance: ROMIPLOSTIM
     Dosage: 350 MCG, Q2WK
     Route: 058
     Dates: start: 20181114, end: 20181212

REACTIONS (1)
  - Thrombocytosis [Recovered/Resolved]

NARRATIVE: CASE EVENT DATE: 20181114
